FAERS Safety Report 9668667 (Version 2)
Quarter: 2013Q4

REPORT INFORMATION
  Report Type: Report from Study
  Country: HU (occurrence: HU)
  Receive Date: 20131105
  Receipt Date: 20131111
  Transmission Date: 20140711
  Serious: Yes (Other)
  Sender: FDA-Public Use
  Company Number: HU-ROCHE-1299449

PATIENT
  Age: 32 Year
  Sex: Male
  Weight: 90 kg

DRUGS (5)
  1. OMALIZUMAB [Suspect]
     Indication: ASTHMA
     Route: 065
     Dates: start: 20130911
  2. MONTELUKAST [Concomitant]
  3. ALVESCO [Concomitant]
  4. FORMOTEROL [Concomitant]
  5. BERODUAL N [Concomitant]

REACTIONS (2)
  - Carotid artery stenosis [Unknown]
  - Dizziness [Recovering/Resolving]
